FAERS Safety Report 6348620-1 (Version None)
Quarter: 2009Q3

REPORT INFORMATION
  Report Type: 
  Country: None (occurrence: None)
  Receive Date: 20090911
  Receipt Date: 20090901
  Transmission Date: 20100115
  Serious: Yes (Hospitalization)
  Sender: FDA-Public Use
  Company Number: CN-JNJFOC-20090706822

PATIENT
  Sex: Female
  Weight: 60 kg

DRUGS (2)
  1. BLINDED; INFLIXIMAB, RECOMBINANT [Suspect]
     Indication: PSORIASIS
     Dosage: GIVEN AT WEEKS 0, 2 AND 6
     Route: 042
     Dates: start: 20090504, end: 20090713
  2. PLACEBO [Suspect]
     Indication: PSORIASIS
     Dosage: GIVEN AT WEEKS 0, 2 AND 6
     Route: 042

REACTIONS (2)
  - PNEUMONIA [None]
  - PULMONARY TUBERCULOSIS [None]
